FAERS Safety Report 7092106-6 (Version None)
Quarter: 2010Q4

REPORT INFORMATION
  Report Type: 
  Country: None (occurrence: None)
  Receive Date: 20101101
  Receipt Date: 20101016
  Transmission Date: 20110411
  Serious: Yes (Hospitalization, Other)
  Sender: FDA-Public Use
  Company Number: IPC201010-000275

PATIENT
  Age: 28 Year
  Sex: Male

DRUGS (9)
  1. FUROSEMIDE [Suspect]
     Indication: CARDIAC FAILURE
     Dosage: 40 MG DAILY FOR FOUR + A HALF MONTHS
  2. METOPROLOL TARTRATE [Suspect]
     Indication: CARDIAC FAILURE
  3. LINCOMYCIN [Suspect]
     Indication: PHARYNGITIS
     Dosage: 3 DAYS PRIOR TO HOSPITALISATION, INTRAMUSCULAR
     Route: 030
  4. ENALAPRIL MALEATE [Suspect]
     Indication: CARDIAC FAILURE
     Dosage: 135 DAYS PRECEDING HOSPITALIZATION
  5. SILVER SULFADIAZINE [Suspect]
     Indication: STEVENS-JOHNSON SYNDROME
  6. SPIRONOLACTONE [Suspect]
     Indication: CARDIAC FAILURE
     Dosage: 135 DAYS PRECEDING HOSPITALIZATION
  7. DIGITOXIN [Suspect]
     Indication: CARDIAC FAILURE
     Dosage: 135 DAYS PRECEDING HOSPITALIZATION
  8. AMOXICILLIN [Suspect]
     Indication: PHARYNGITIS
     Dosage: 3 DAYS PRIOR TO HOSPITALISATION
  9. ACETAMINOPHEN [Suspect]
     Indication: PHARYNGITIS

REACTIONS (7)
  - ACINETOBACTER BACTERAEMIA [None]
  - CROSS SENSITIVITY REACTION [None]
  - INFECTION [None]
  - PHARYNGITIS [None]
  - RENAL FAILURE ACUTE [None]
  - STEVENS-JOHNSON SYNDROME [None]
  - THROMBOSIS [None]
